FAERS Safety Report 6457789-X (Version None)
Quarter: 2009Q4

REPORT INFORMATION
  Report Type: 
  Country: None (occurrence: None)
  Receive Date: 20091119
  Receipt Date: 20091104
  Transmission Date: 20100525
  Serious: Yes (Death)
  Sender: FDA-Public Use
  Company Number: BR-JNJFOC-20090601388

PATIENT
  Age: 32 Year
  Sex: Female
  Weight: 65 kg

DRUGS (3)
  1. DECITABINE (DECITABINE) LYOPHILIZED POWDER [Suspect]
     Indication: MYELODYSPLASTIC SYNDROME
     Dosage: 34 MG, INTRAVENOUS ; 34 MG INTRAVENOUS ; 33 MG, INTRAVENOUS
     Route: 042
     Dates: start: 20090112, end: 20090116
  2. DECITABINE (DECITABINE) LYOPHILIZED POWDER [Suspect]
     Indication: MYELODYSPLASTIC SYNDROME
     Dosage: 34 MG, INTRAVENOUS ; 34 MG INTRAVENOUS ; 33 MG, INTRAVENOUS
     Route: 042
     Dates: start: 20090309, end: 20090310
  3. DECITABINE (DECITABINE) LYOPHILIZED POWDER [Suspect]
     Indication: MYELODYSPLASTIC SYNDROME
     Dosage: 34 MG, INTRAVENOUS ; 34 MG INTRAVENOUS ; 33 MG, INTRAVENOUS
     Route: 042
     Dates: start: 20090504, end: 20090508

REACTIONS (5)
  - ANAEMIA [None]
  - CONDITION AGGRAVATED [None]
  - NEUTROPENIA [None]
  - SEPSIS [None]
  - THROMBOCYTOPENIA [None]
